FAERS Safety Report 5846228-5 (Version None)
Quarter: 2008Q3

REPORT INFORMATION
  Report Type: 
  Country: None (occurrence: None)
  Receive Date: 20080813
  Receipt Date: 20080729
  Transmission Date: 20090109
  Serious: Yes (Other)
  Sender: FDA-Public Use
  Company Number: 2008063863

PATIENT
  Sex: Female
  Weight: 67 kg

DRUGS (1)
  1. FRAGMIN [Suspect]
     Indication: EMBOLISM VENOUS
     Dosage: 7500 I.U.
     Route: 042

REACTIONS (3)
  - BLOOD CREATININE INCREASED [None]
  - DEEP VEIN THROMBOSIS [None]
  - RENAL IMPAIRMENT [None]
